FAERS Safety Report 21747711 (Version 1)
Quarter: 2022Q4

REPORT INFORMATION
  Report Type: Spontaneous
  Country: GB (occurrence: GB)
  Receive Date: 20221219
  Receipt Date: 20221219
  Transmission Date: 20230112
  Serious: Yes (Hospitalization, Other)
  Sender: FDA-Public Use
  Company Number: GB-Hikma Pharmaceuticals USA Inc.-GB-H14001-22-02294

PATIENT
  Age: 60 Year
  Sex: Male
  Weight: 58.3 kg

DRUGS (3)
  1. CARBOPLATIN [Suspect]
     Active Substance: CARBOPLATIN
     Indication: Anal cancer
     Dosage: AUC 5 MG/ML PER MINUTE;; ON DAY ONE OF EACH 28-DAY CYCLE (UP TO 6 CYCLES),
     Route: 042
  2. PACLITAXEL [Suspect]
     Active Substance: PACLITAXEL
     Indication: Anal cancer
     Dosage: UNIT DOSE : 80 MG/M2, ON DAY ONE, EIGHT AND 15 OF EACH 28-DAY CYCLE (UP TO 6 CYCLES)
     Route: 042
  3. RETIFANLIMAB [Suspect]
     Active Substance: RETIFANLIMAB
     Indication: Anal cancer
     Dosage: THERAPY END DATE : NOT ASKED,  UNIT DOSE : 500 MG, ON DAY ONE OF EACH 28-DAY CYCLE
     Route: 042
     Dates: start: 20220623, end: 20220721

REACTIONS (4)
  - Food intolerance [Unknown]
  - Abdominal distension [Unknown]
  - Intestinal obstruction [Recovering/Resolving]
  - Nausea [Recovering/Resolving]

NARRATIVE: CASE EVENT DATE: 20220804
